FAERS Safety Report 14322362 (Version 1)
Quarter: 2017Q4

REPORT INFORMATION
  Report Type: Spontaneous
  Country: FR (occurrence: FR)
  Receive Date: 20171225
  Receipt Date: 20171225
  Transmission Date: 20180321
  Serious: Yes (Death, Life-Threatening, Other)
  Sender: FDA-Public Use
  Company Number: PHHY2017FR191977

PATIENT
  Age: 14 Year
  Sex: Male

DRUGS (7)
  1. CALCIUM HEPARIN [Concomitant]
     Indication: ANTICOAGULANT THERAPY
     Route: 058
  2. BUDESONIDE. [Suspect]
     Active Substance: BUDESONIDE
     Dosage: 9 MG, QD
     Route: 048
     Dates: start: 20130701
  3. BUDESONIDE. [Suspect]
     Active Substance: BUDESONIDE
     Indication: HYPOALBUMINAEMIA
     Route: 048
  4. SOMATOSTATIN [Suspect]
     Active Substance: SOMATOSTATIN
     Indication: HYPOALBUMINAEMIA
     Dosage: 25 UG, QH
     Route: 042
  5. SOMATOSTATIN [Suspect]
     Active Substance: SOMATOSTATIN
     Indication: GASTROINTESTINAL HAEMORRHAGE
     Dosage: 50 UG, QD (50 G 2 TIMES DAILY)
     Route: 058
  6. ALBUMIN [Concomitant]
     Active Substance: ALBUMIN HUMAN
     Indication: HYPOALBUMINAEMIA
     Route: 065
  7. BUDESONIDE. [Suspect]
     Active Substance: BUDESONIDE
     Indication: GASTROINTESTINAL HAEMORRHAGE
     Dosage: 50 MG, QD
     Route: 048

REACTIONS (7)
  - Precursor B-lymphoblastic lymphoma [Fatal]
  - Off label use [Recovered/Resolved]
  - Drug ineffective for unapproved indication [Recovered/Resolved]
  - Hypokalaemia [Unknown]
  - Cushing^s syndrome [Unknown]
  - Product use issue [Unknown]
  - Epstein-Barr virus infection [Unknown]
